FAERS Safety Report 7968494-2 (Version None)
Quarter: 2011Q4

REPORT INFORMATION
  Report Type: 
  Country: None (occurrence: None)
  Receive Date: 20111209
  Receipt Date: 20111202
  Transmission Date: 20120403
  Serious: Yes (Hospitalization)
  Sender: FDA-Public Use
  Company Number: US-ABBOTT-11P-163-0880413-00

PATIENT
  Sex: Female

DRUGS (1)
  1. HUMIRA [Suspect]
     Indication: CROHN'S DISEASE

REACTIONS (6)
  - HERNIA REPAIR [None]
  - INTESTINAL OBSTRUCTION [None]
  - CATARACT [None]
  - NASOPHARYNGITIS [None]
  - CROHN'S DISEASE [None]
  - VIRAL INFECTION [None]
